FAERS Safety Report 25382413 (Version 3)
Quarter: 2025Q3

REPORT INFORMATION
  Report Type: Spontaneous
  Country: US (occurrence: US)
  Receive Date: 20250601
  Receipt Date: 20250902
  Transmission Date: 20251020
  Serious: No
  Sender: SANOFI AVENTIS
  Company Number: US-SA-2025SA154480

PATIENT
  Age: 65 Year
  Sex: Female

DRUGS (2)
  1. DUPIXENT [Suspect]
     Active Substance: DUPILUMAB
     Indication: Dermatitis atopic
     Route: 058
     Dates: start: 202505, end: 202505
  2. DUPIXENT [Suspect]
     Active Substance: DUPILUMAB
     Indication: Neurodermatitis
     Dosage: 300 MG, QOW
     Route: 058
     Dates: start: 2025

REACTIONS (18)
  - Upper-airway cough syndrome [Unknown]
  - Alopecia [Unknown]
  - Blister [Unknown]
  - Fatigue [Unknown]
  - Condition aggravated [Unknown]
  - Erythema [Unknown]
  - Insomnia [Unknown]
  - Pain in extremity [Unknown]
  - Pruritus [Unknown]
  - Dermatitis atopic [Unknown]
  - Neurodermatitis [Unknown]
  - Pain of skin [Unknown]
  - Skin mass [Unknown]
  - Skin burning sensation [Unknown]
  - Tinea pedis [Unknown]
  - Fungal infection [Unknown]
  - Somnolence [Unknown]
  - Therapeutic response shortened [Unknown]

NARRATIVE: CASE EVENT DATE: 20250101
